FAERS Safety Report 6581548-0 (Version None)
Quarter: 2010Q1

REPORT INFORMATION
  Report Type: 
  Country: None (occurrence: None)
  Receive Date: 20100215
  Receipt Date: 20100105
  Transmission Date: 20100710
  Serious: Yes (Other)
  Sender: FDA-Public Use
  Company Number: BR-ASTRAZENECA-2010SE00668

PATIENT
  Age: 56 Year
  Sex: Female
  Weight: 90 kg

DRUGS (2)
  1. ATACAND HCT [Suspect]
     Indication: HYPERTENSION
     Dosage: 16/12.5 ONCE A DAY
     Route: 048
     Dates: start: 20040101
  2. SELOZOK [Suspect]
     Indication: ARRHYTHMIA
     Route: 048
     Dates: start: 20040101

REACTIONS (2)
  - BREAST HAEMORRHAGE [None]
  - BREAST HYPERPLASIA [None]
